FAERS Safety Report 8032033-0 (Version None)
Quarter: 2012Q1

REPORT INFORMATION
  Report Type: 
  Country: None (occurrence: None)
  Receive Date: 20120109
  Receipt Date: 20110610
  Transmission Date: 20120608
  Serious: No
  Sender: FDA-Public Use
  Company Number: US-ABBOTT-11P-163-0732009-00

PATIENT
  Age: 64 Year
  Sex: Female
  Weight: 55.388 kg

DRUGS (4)
  1. COUMADIN [Concomitant]
     Indication: THROMBOSIS
     Dates: start: 20040101
  2. PAXIL [Concomitant]
     Indication: DEPRESSION
     Dates: start: 20080101
  3. VICODIN [Suspect]
     Indication: PAIN
     Dates: start: 20110401
  4. LORTAB [Concomitant]
     Indication: PAIN

REACTIONS (2)
  - DRUG ABUSE [None]
  - DRUG INEFFECTIVE [None]
